FAERS Safety Report 5699426-8 (Version None)
Quarter: 2008Q2

REPORT INFORMATION
  Report Type: 
  Country: None (occurrence: None)
  Receive Date: 20080407
  Receipt Date: 20080324
  Transmission Date: 20081010
  Serious: Yes (Other)
  Sender: FDA-Public Use
  Company Number: TRP_01048_2008

PATIENT
  Sex: Male

DRUGS (2)
  1. RIBASPHERE [Suspect]
     Indication: HEPATITIS C VIRUS
     Dosage: (800 MG QD ORAL)
     Route: 048
     Dates: start: 20071016
  2. PEGASYS [Suspect]
     Indication: HEPATITIS C VIRUS
     Dosage: (DF SUBCUTANEOUS)
     Route: 058
     Dates: start: 20071016

REACTIONS (4)
  - HAEMOPTYSIS [None]
  - HAEMORRHAGE [None]
  - LIP HAEMORRHAGE [None]
  - PLATELET COUNT DECREASED [None]
